FAERS Safety Report 9023407 (Version 2)
Quarter: 2013Q1

REPORT INFORMATION
  Report Type: Spontaneous
  Country: CA (occurrence: CA)
  Receive Date: 20130121
  Receipt Date: 20130329
  Transmission Date: 20140127
  Serious: Yes (Other)
  Sender: FDA-Public Use
  Company Number: CA-ABBOTT-13P-028-1036755-00

PATIENT
  Age: 5 Year
  Sex: Female

DRUGS (2)
  1. VALPROATE [Suspect]
     Indication: CONVULSION
  2. BENZODIAZEPINE DERIVATIVES [Concomitant]

REACTIONS (2)
  - Pancreatitis necrotising [Unknown]
  - Diabetes mellitus [Not Recovered/Not Resolved]
